FAERS Safety Report 8975300 (Version 1)
Quarter: 2012Q4

REPORT INFORMATION
  Report Type: 
  Country: IT (occurrence: IT)
  Receive Date: 20121219
  Receipt Date: 20121219
  Transmission Date: 20130627
  Serious: Yes (Death, Hospitalization, Other)
  Sender: FDA-Public Use
  Company Number: PHHY2012IT115523

PATIENT
  Age: 83 Year
  Sex: Female

DRUGS (1)
  1. IMATINIB [Suspect]
     Indication: CHRONIC MYELOID LEUKAEMIA
     Dosage: 400 mg, daily
     Route: 048

REACTIONS (4)
  - Death [Fatal]
  - Anaemia [Unknown]
  - Leukopenia [Unknown]
  - Chronic lymphocytic leukaemia [Unknown]
